FAERS Safety Report 8339838-7 (Version None)
Quarter: 2012Q2

REPORT INFORMATION
  Report Type: 
  Country: None (occurrence: None)
  Receive Date: 20120507
  Receipt Date: 20120426
  Transmission Date: 20120825
  Serious: Yes (Hospitalization)
  Sender: FDA-Public Use
  Company Number: DE-PFIZER INC-2012108745

PATIENT
  Sex: Male

DRUGS (3)
  1. AMIODARONE HCL [Suspect]
     Dosage: UNK
     Route: 042
  2. AMIODARONE HCL [Suspect]
     Dosage: UNK
     Route: 048
  3. MULTAQ [Concomitant]
     Dosage: UNK

REACTIONS (2)
  - ARRHYTHMIA [None]
  - GENERAL PHYSICAL HEALTH DETERIORATION [None]
